FAERS Safety Report 18786115 (Version 3)
Quarter: 2021Q1

REPORT INFORMATION
  Report Type: Spontaneous
  Country: DE (occurrence: DE)
  Receive Date: 20210125
  Receipt Date: 20210215
  Transmission Date: 20210419
  Serious: Yes (Death, Hospitalization)
  Sender: FDA-Public Use
  Company Number: DE-ASTRAZENECA-2021A010443

PATIENT
  Age: 78 Year
  Sex: Female
  Weight: 51 kg

DRUGS (2)
  1. FULVESTRANT. [Suspect]
     Active Substance: FULVESTRANT
     Indication: BREAST CANCER FEMALE
     Dosage: 500.0MG UNKNOWN
     Route: 030
     Dates: start: 20191113
  2. RIBOCICLIB. [Suspect]
     Active Substance: RIBOCICLIB
     Indication: BREAST CANCER FEMALE
     Dosage: 400.0MG UNKNOWN
     Route: 048
     Dates: start: 20191114

REACTIONS (2)
  - Metastases to liver [Fatal]
  - General physical health deterioration [Not Recovered/Not Resolved]

NARRATIVE: CASE EVENT DATE: 20200102
